FAERS Safety Report 9119360 (Version 3)
Quarter: 2013Q2

REPORT INFORMATION
  Report Type: Spontaneous
  Country: ES (occurrence: ES)
  Receive Date: 20130226
  Receipt Date: 20130501
  Transmission Date: 20140414
  Serious: Yes (Death, Hospitalization)
  Sender: FDA-Public Use
  Company Number: ES-MPIJNJ-2013-01334

PATIENT
  Sex: 0

DRUGS (7)
  1. VELCADE [Suspect]
     Indication: PLASMA CELL MYELOMA
     Dosage: UNK
     Route: 058
     Dates: start: 20130123, end: 201302
  2. DEXAMETHASONE [Concomitant]
     Indication: PLASMA CELL MYELOMA
     Dosage: UNK
     Dates: start: 20130123
  3. ALLOPURINOL [Concomitant]
     Dosage: 300 MG, UNK
     Dates: start: 20130130
  4. RASBURICASE [Concomitant]
     Dosage: UNK
     Dates: start: 20130123, end: 20130125
  5. ENALAPRIL [Concomitant]
     Indication: BLOOD PRESSURE
     Dosage: 20 MG, UNK
     Dates: start: 20130130
  6. FUROSEMIDE [Concomitant]
     Dosage: 20 MG, UNK
     Dates: start: 20130123
  7. INSULIN [Concomitant]
     Indication: DIABETES MELLITUS
     Dosage: UNK
     Dates: start: 20130123

REACTIONS (5)
  - Acute hepatic failure [Fatal]
  - Hypercalcaemia [Recovering/Resolving]
  - Bacteraemia [Unknown]
  - Coagulopathy [Unknown]
  - Hepatic encephalopathy [Unknown]
